FAERS Safety Report 7093315-2 (Version None)
Quarter: 2010Q4

REPORT INFORMATION
  Report Type: 
  Country: None (occurrence: None)
  Receive Date: 20101110
  Receipt Date: 20090615
  Transmission Date: 20110411
  Serious: Yes (Death)
  Sender: FDA-Public Use
  Company Number: US-BAYER-201039402NA

PATIENT
  Sex: Male

DRUGS (1)
  1. TRASYLOL [Suspect]
     Indication: PRODUCT USED FOR UNKNOWN INDICATION
     Route: 042
     Dates: start: 20080128, end: 20080128

REACTIONS (5)
  - ANXIETY [None]
  - DEATH [None]
  - EMOTIONAL DISTRESS [None]
  - INJURY [None]
  - PAIN [None]
